FAERS Safety Report 21786700 (Version 1)
Quarter: 2022Q4

REPORT INFORMATION
  Report Type: Spontaneous
  Country: US (occurrence: US)
  Receive Date: 20221228
  Receipt Date: 20221228
  Transmission Date: 20230113
  Serious: No
  Sender: FDA-Public Use
  Company Number: US-PHARMING-PHAUS2022000883

PATIENT

DRUGS (1)
  1. RUCONEST [Suspect]
     Active Substance: HUMAN C1-ESTERASE INHIBITOR
     Indication: Hereditary angioedema
     Dosage: 2100 IU, TWICE A WEEK AND AS NEEDED
     Route: 058
     Dates: start: 20180315

REACTIONS (5)
  - Weight increased [Unknown]
  - Tooth disorder [Unknown]
  - Intentional product use issue [Unknown]
  - Underdose [Unknown]
  - Incorrect route of product administration [Unknown]
